FAERS Safety Report 5849822-0 (Version None)
Quarter: 2008Q3

REPORT INFORMATION
  Report Type: 
  Country: None (occurrence: None)
  Receive Date: 20080731
  Receipt Date: 20080603
  Transmission Date: 20090109
  Serious: No
  Sender: FDA-Public Use
  Company Number: US200806000868

PATIENT
  Age: 43 Year
  Sex: Female
  Weight: 120.2 kg

DRUGS (13)
  1. BYETTA [Suspect]
     Indication: TYPE 2 DIABETES MELLITUS
     Dosage: 5 UG, 2/D, SUBCUTANEOUS ; 10 UG, 2/D, SUBCUTANEOUS ; 10 UG, 2/D, SUBCUTANEOUS
     Route: 058
     Dates: start: 20080401, end: 20080523
  2. BYETTA [Suspect]
     Indication: TYPE 2 DIABETES MELLITUS
     Dosage: 5 UG, 2/D, SUBCUTANEOUS ; 10 UG, 2/D, SUBCUTANEOUS ; 10 UG, 2/D, SUBCUTANEOUS
     Route: 058
     Dates: start: 20080524, end: 20080529
  3. BYETTA [Suspect]
     Indication: TYPE 2 DIABETES MELLITUS
     Dosage: 5 UG, 2/D, SUBCUTANEOUS ; 10 UG, 2/D, SUBCUTANEOUS ; 10 UG, 2/D, SUBCUTANEOUS
     Route: 058
     Dates: start: 20080530
  4. METFORMIN HCL [Concomitant]
  5. NOVOLOG [Concomitant]
  6. LANTUS [Concomitant]
  7. ACTOS /USA/ (PIOGLITAZONE HYDROCHLORIDE) [Concomitant]
  8. LISINOPRIL /USA/ (LISINOPRIL) [Concomitant]
  9. ATENOLOL [Concomitant]
  10. CRESTOR [Concomitant]
  11. ALLOPURINOL [Concomitant]
  12. RANITIDINE [Concomitant]
  13. OMEPRAZOLE [Concomitant]

REACTIONS (7)
  - ABDOMINAL PAIN [None]
  - DIZZINESS [None]
  - GASTRITIS [None]
  - HEADACHE [None]
  - NAUSEA [None]
  - OESOPHAGITIS [None]
  - VOMITING [None]
